FAERS Safety Report 10502646 (Version 2)
Quarter: 2014Q4

REPORT INFORMATION
  Report Type: Spontaneous
  Country: US (occurrence: None)
  Receive Date: 20141003
  Receipt Date: 20141121
  Transmission Date: 20150528
  Serious: Yes (Hospitalization, Other)
  Sender: FDA-Public Use
  Company Number: 2012US0266

PATIENT
  Age: 20 Year
  Sex: Female
  Weight: 73.4 kg

DRUGS (3)
  1. ANAKINRA [Suspect]
     Active Substance: ANAKINRA
     Indication: CHRONIC INFANTILE NEUROLOGICAL CUTANEOUS AND ARTICULAR SYNDROME
     Dates: start: 20040506
  2. BENADRYL (DIPHENHYDRAMINE) [Concomitant]
  3. PRENATAL VITAMINS (VITAMINS) [Concomitant]

REACTIONS (16)
  - Fatigue [None]
  - Condition aggravated [None]
  - Pre-eclampsia [None]
  - Arthralgia [None]
  - Headache [None]
  - Oropharyngeal pain [None]
  - Oligohydramnios [None]
  - Exposure during pregnancy [None]
  - Postpartum haemorrhage [None]
  - Vanishing twin syndrome [None]
  - Gestational hypertension [None]
  - Rash [None]
  - Pyrexia [None]
  - Labour induction [None]
  - Foetal distress syndrome [None]
  - Ear pain [None]

NARRATIVE: CASE EVENT DATE: 20130224
